FAERS Safety Report 19853993 (Version 3)
Quarter: 2022Q3

REPORT INFORMATION
  Report Type: Report from Study
  Country: US (occurrence: US)
  Receive Date: 20210920
  Receipt Date: 20220708
  Transmission Date: 20221026
  Serious: Yes (Other)
  Sender: FDA-Public Use
  Company Number: US-NOVARTISPH-NVSC2021US211604

PATIENT
  Sex: Male
  Weight: 84.807 kg

DRUGS (1)
  1. ENTRESTO [Suspect]
     Active Substance: SACUBITRIL\VALSARTAN
     Indication: Product used for unknown indication
     Dosage: 1 DOSAGE FORM, BID (97/103 MG)
     Route: 048
     Dates: start: 20210723

REACTIONS (5)
  - Aortic valve disease [Unknown]
  - Weight decreased [Unknown]
  - Heart rate abnormal [Unknown]
  - Hypotension [Recovering/Resolving]
  - Dizziness postural [Recovering/Resolving]
